FAERS Safety Report 8831539 (Version 1)
Quarter: 2012Q4

REPORT INFORMATION
  Report Type: Report from Study
  Country: US (occurrence: US)
  Receive Date: 20121009
  Receipt Date: 20121009
  Transmission Date: 20130627
  Serious: Yes (Other)
  Sender: FDA-Public Use
  Company Number: US-ABBOTT-12P-163-0990251-00

PATIENT
  Age: 52 Year
  Sex: Female

DRUGS (8)
  1. HUMIRA [Suspect]
     Indication: PRODUCT USED FOR UNKNOWN INDICATION
     Dates: start: 20120817
  2. SEROQUEL [Concomitant]
     Indication: PRODUCT USED FOR UNKNOWN INDICATION
     Dosage: 25 mg, at bedtime
  3. TRAZODONE [Concomitant]
     Indication: INSOMNIA
  4. ZOLOFT [Concomitant]
     Indication: DEPRESSION
     Dosage: 150 mg daily
     Route: 048
  5. WELLBUTRIN [Concomitant]
     Indication: DEPRESSION
  6. UNKNOWN PILL [Concomitant]
     Indication: DYSPEPSIA
  7. MOBIC [Concomitant]
     Indication: COLITIS ULCERATIVE
     Route: 048
  8. PENTASA [Concomitant]
     Indication: COLITIS ULCERATIVE
     Dosage: 8 pills per day

REACTIONS (1)
  - Hernia [Not Recovered/Not Resolved]
